FAERS Safety Report 9006696 (Version 2)
Quarter: 2014Q1

REPORT INFORMATION
  Report Type: Report from Study
  Country: IT (occurrence: IT)
  Receive Date: 20130110
  Receipt Date: 20140103
  Transmission Date: 20141002
  Serious: Yes (Death)
  Sender: FDA-Public Use
  Company Number: IT-ROCHE-1177160

PATIENT
  Age: 48 Year
  Sex: Female

DRUGS (4)
  1. BEVACIZUMAB [Suspect]
     Indication: COLORECTAL CANCER METASTATIC
     Route: 065
  2. BEVACIZUMAB [Suspect]
     Indication: METASTASES TO LIVER
  3. IRINOTECAN [Suspect]
     Indication: COLORECTAL CANCER METASTATIC
     Route: 065
  4. CETUXIMAB [Suspect]
     Indication: COLORECTAL CANCER METASTATIC
     Route: 065

REACTIONS (3)
  - Sepsis [Fatal]
  - Hepatic function abnormal [Fatal]
  - Biliary tract disorder [Fatal]
